FAERS Safety Report 4802567-8 (Version None)
Quarter: 2005Q4

REPORT INFORMATION
  Report Type: 
  Country: None (occurrence: None)
  Receive Date: 20051014
  Receipt Date: 20050118
  Transmission Date: 20060501
  Serious: Yes (Other)
  Sender: FDA-Public Use
  Company Number: 2005015755

PATIENT
  Age: 59 Year
  Sex: Female

DRUGS (2)
  1. NEURONTIN [Suspect]
     Indication: BIPOLAR DISORDER
     Dates: start: 19990101, end: 20030701
  2. NEURONTIN [Suspect]
     Indication: CONVULSION
     Dates: start: 19990101, end: 20030701

REACTIONS (13)
  - ANXIETY [None]
  - APPETITE DISORDER [None]
  - CEREBROVASCULAR ACCIDENT [None]
  - CONVULSION [None]
  - DEPRESSION [None]
  - FEEDING DISORDER [None]
  - FEELING ABNORMAL [None]
  - LETHARGY [None]
  - LOSS OF CONSCIOUSNESS [None]
  - OVERDOSE [None]
  - SLEEP DISORDER [None]
  - STRESS [None]
  - SUICIDAL IDEATION [None]
